FAERS Safety Report 13599143 (Version 1)
Quarter: 2017Q2

REPORT INFORMATION
  Report Type: Spontaneous
  Country: GB (occurrence: GB)
  Receive Date: 20170531
  Receipt Date: 20170531
  Transmission Date: 20170830
  Serious: Yes (Other)
  Sender: FDA-Public Use
  Company Number: PHFR2017GB003870

PATIENT
  Age: 65 Year
  Sex: Male

DRUGS (1)
  1. ATORVASTATIN [Suspect]
     Active Substance: ATORVASTATIN
     Indication: CARDIOVASCULAR EVENT PROPHYLAXIS
     Dosage: 20 MG, UNK
     Route: 048
     Dates: start: 20170420, end: 20170506

REACTIONS (8)
  - Skin tightness [Recovering/Resolving]
  - Rash [Recovering/Resolving]
  - Eye swelling [Recovering/Resolving]
  - Pain of skin [Not Recovered/Not Resolved]
  - Angioedema [Recovering/Resolving]
  - Swelling face [Recovering/Resolving]
  - Skin exfoliation [Not Recovered/Not Resolved]
  - Skin discomfort [Not Recovered/Not Resolved]

NARRATIVE: CASE EVENT DATE: 20170506
